FAERS Safety Report 5320236-5 (Version None)
Quarter: 2007Q2

REPORT INFORMATION
  Report Type: 
  Country: None (occurrence: None)
  Receive Date: 20070509
  Receipt Date: 20070509
  Transmission Date: 20071010
  Serious: Yes (Hospitalization)
  Sender: FDA-Public Use
  Company Number: B0469530A

PATIENT
  Age: 62 Year
  Sex: Male
  Weight: 54 kg

DRUGS (17)
  1. VALTREX [Suspect]
     Indication: HERPES ZOSTER
     Dosage: 1000MG THREE TIMES PER DAY
     Route: 048
     Dates: start: 20070417, end: 20070419
  2. PROGRAF [Suspect]
     Indication: DRUG USE FOR UNKNOWN INDICATION
     Dosage: .5MG PER DAY
     Route: 048
     Dates: start: 20070402
  3. ISCOTIN [Concomitant]
     Dosage: 100MG THREE TIMES PER DAY
     Route: 048
     Dates: start: 20070402
  4. VITAMEDIN [Concomitant]
     Route: 048
     Dates: start: 20070402
  5. NORVASC [Concomitant]
     Dosage: 5MG PER DAY
     Route: 048
     Dates: start: 20070402
  6. PREDONINE [Concomitant]
     Dosage: 5MG PER DAY
     Route: 048
     Dates: start: 20070402
  7. TAKEPRON [Concomitant]
     Dosage: 15MG PER DAY
     Route: 048
     Dates: start: 20070402
  8. DEPAS [Concomitant]
     Dosage: .5MG TWICE PER DAY
     Route: 048
     Dates: start: 20070402
  9. HYALEIN [Concomitant]
     Route: 031
     Dates: start: 20070402
  10. MAGMITT [Concomitant]
     Dosage: 330MG FOUR TIMES PER DAY
     Route: 048
     Dates: start: 20070402
  11. ITRACONAZOLE [Concomitant]
     Dosage: 100MG PER DAY
     Route: 048
     Dates: start: 20070402
  12. ISODINE GARGLE [Concomitant]
     Route: 065
     Dates: start: 20070402
  13. HARNAL [Concomitant]
     Dosage: .2MG PER DAY
     Route: 048
  14. ARASENA-A [Concomitant]
     Route: 061
     Dates: start: 20070417
  15. GENTACIN [Concomitant]
     Route: 061
     Dates: start: 20070426
  16. SODIUM CHLORIDE [Concomitant]
     Dosage: 1G THREE TIMES PER DAY
     Route: 048
     Dates: start: 20070426
  17. PENTAZOCINE LACTATE [Concomitant]
     Indication: PAIN
     Route: 030
     Dates: start: 20070420

REACTIONS (5)
  - CHEST PAIN [None]
  - HYPONATRAEMIA [None]
  - MALAISE [None]
  - URINE ABNORMALITY [None]
  - URINE OUTPUT DECREASED [None]
